FAERS Safety Report 24195940 (Version 1)
Quarter: 2024Q3

REPORT INFORMATION
  Report Type: Spontaneous
  Country: JP (occurrence: JP)
  Receive Date: 20240809
  Receipt Date: 20240809
  Transmission Date: 20241016
  Serious: Yes (Death, Other)
  Sender: GENMAB
  Company Number: JP-GENMAB-2024-02884

PATIENT
  Age: 69 Year
  Sex: Male

DRUGS (2)
  1. EPKINLY [Suspect]
     Active Substance: EPCORITAMAB-BYSP
     Indication: Diffuse large B-cell lymphoma
     Dosage: UNK
     Route: 058
     Dates: start: 20240723, end: 20240730
  2. CORTICOTROPIN [Suspect]
     Active Substance: CORTICOTROPIN
     Dosage: UNK

REACTIONS (4)
  - Diffuse large B-cell lymphoma [Fatal]
  - Altered state of consciousness [Not Recovered/Not Resolved]
  - Metastases to central nervous system [Unknown]
  - Delirium [Unknown]

NARRATIVE: CASE EVENT DATE: 20240801
